FAERS Safety Report 24666444 (Version 2)
Quarter: 2025Q2

REPORT INFORMATION
  Report Type: Spontaneous
  Country: US (occurrence: US)
  Receive Date: 20241126
  Receipt Date: 20250506
  Transmission Date: 20250717
  Serious: No
  Sender: ELI LILLY AND COMPANY
  Company Number: US-ELI_LILLY_AND_COMPANY-US202411010168

PATIENT
  Age: 53 Year
  Sex: Male

DRUGS (3)
  1. EMGALITY [Suspect]
     Active Substance: GALCANEZUMAB-GNLM
     Indication: Product used for unknown indication
     Route: 065
     Dates: start: 202411
  2. EMGALITY [Suspect]
     Active Substance: GALCANEZUMAB-GNLM
     Route: 065
  3. B VITAMIN COMP [CALCIUM PANTOTHENATE;NICOTINA [Concomitant]
     Indication: Product used for unknown indication

REACTIONS (6)
  - Malaise [Unknown]
  - Sleep disorder due to a general medical condition [Unknown]
  - Migraine [Unknown]
  - Accidental underdose [Unknown]
  - Headache [Unknown]
  - Injection site urticaria [Unknown]

NARRATIVE: CASE EVENT DATE: 20241101
